FAERS Safety Report 18560062 (Version 2)
Quarter: 2020Q4

REPORT INFORMATION
  Report Type: Report from Study
  Country: US (occurrence: US)
  Receive Date: 20201130
  Receipt Date: 20201216
  Transmission Date: 20210114
  Serious: Yes (Other)
  Sender: FDA-Public Use
  Company Number: US-BAYER-2020-236618

PATIENT
  Sex: Female

DRUGS (6)
  1. LEVOCETIRIZINE;MONTELUKAST [Concomitant]
  2. XARELTO [Suspect]
     Active Substance: RIVAROXABAN
     Indication: PRODUCT USED FOR UNKNOWN INDICATION
     Route: 048
  3. ASPIRIN (CARDIO) [Suspect]
     Active Substance: ASPIRIN
     Dosage: UNK
  4. MULTAQ [Suspect]
     Active Substance: DRONEDARONE
     Dosage: UNK
  5. XARELTO [Suspect]
     Active Substance: RIVAROXABAN
     Indication: PRODUCT USED FOR UNKNOWN INDICATION
     Dosage: UNK
     Route: 048
  6. METOPROLOL. [Concomitant]
     Active Substance: METOPROLOL

REACTIONS (4)
  - Palpitations [Unknown]
  - Cerebrovascular accident [Unknown]
  - Drug ineffective [Unknown]
  - Dyspnoea [Unknown]
